FAERS Safety Report 7164814-X (Version None)
Quarter: 2010Q4

REPORT INFORMATION
  Report Type: 
  Country: None (occurrence: None)
  Receive Date: 20101215
  Receipt Date: 20101207
  Transmission Date: 20110411
  Serious: Yes (Other)
  Sender: FDA-Public Use
  Company Number: US-PFIZER INC-2010047725

PATIENT
  Sex: Male

DRUGS (4)
  1. GEODON [Suspect]
     Indication: PSYCHOTIC DISORDER
     Dosage: 80 MG, 2X/DAY
  2. GEODON [Suspect]
     Dosage: 40 MG, 2X/DAY
     Dates: start: 20100101
  3. COGENTIN [Concomitant]
     Dosage: 0.5 MG, 2X/DAY
  4. BUSPIRONE [Concomitant]
     Dosage: UNK

REACTIONS (4)
  - HALLUCINATION, AUDITORY [None]
  - PSYCHIATRIC SYMPTOM [None]
  - PSYCHOTIC DISORDER [None]
  - TOOTH DISORDER [None]
